FAERS Safety Report 9204241 (Version 4)
Quarter: 2014Q1

REPORT INFORMATION
  Report Type: Report from Study
  Country: BR (occurrence: BR)
  Receive Date: 20130402
  Receipt Date: 20140108
  Transmission Date: 20141002
  Serious: Yes (Death, Hospitalization)
  Sender: FDA-Public Use
  Company Number: BR-ELI_LILLY_AND_COMPANY-BR201303008857

PATIENT
  Age: 76 Year
  Sex: Male

DRUGS (4)
  1. LISPRO REGLISPRO [Suspect]
     Indication: DIABETES MELLITUS
     Dosage: 5 IU, UNKNOWN
     Route: 065
  2. LISPRO REGLISPRO [Suspect]
     Dosage: 4 IU, UNKNOWN
     Route: 065
  3. INSULIN NPH                        /01223208/ [Concomitant]
     Indication: DIABETES MELLITUS
     Dosage: UNK, UNKNOWN
     Route: 065
  4. LOSARTAN [Concomitant]
     Indication: HYPERTENSION
     Dosage: UNK, UNKNOWN
     Route: 065

REACTIONS (1)
  - Acute myocardial infarction [Fatal]
